FAERS Safety Report 15663075 (Version 3)
Quarter: 2019Q4

REPORT INFORMATION
  Report Type: Spontaneous
  Country: US (occurrence: US)
  Receive Date: 20181127
  Receipt Date: 20191205
  Transmission Date: 20200122
  Serious: No
  Sender: FDA-Public Use
  Company Number: US-SA-2018SA322609

PATIENT
  Age: 72 Year
  Sex: Female

DRUGS (2)
  1. PRALUENT [Suspect]
     Active Substance: ALIROCUMAB
     Indication: HYPERLIPIDAEMIA
  2. PRALUENT [Suspect]
     Active Substance: ALIROCUMAB
     Indication: BLOOD CHOLESTEROL
     Dosage: 75 MG, QOW
     Route: 058
     Dates: start: 2017

REACTIONS (4)
  - Fungal infection [Not Recovered/Not Resolved]
  - Urinary tract infection [Unknown]
  - Drug dose omission by device [Unknown]
  - Device operational issue [Unknown]

NARRATIVE: CASE EVENT DATE: 20181121
